FAERS Safety Report 8245656 (Version 2)
Quarter: 2013Q4

REPORT INFORMATION
  Report Type: Spontaneous
  Country: US (occurrence: US)
  Receive Date: 20111115
  Receipt Date: 20131210
  Transmission Date: 20140711
  Serious: Yes (Death, Hospitalization)
  Sender: FDA-Public Use
  Company Number: US-GLAXOSMITHKLINE-A0915563A

PATIENT
  Age: 52 Year
  Sex: Female
  Weight: 110.9 kg

DRUGS (1)
  1. AVANDIA [Suspect]
     Indication: DIABETES MELLITUS
     Dosage: 4MG TWICE PER DAY
     Route: 048
     Dates: start: 200909, end: 201006

REACTIONS (3)
  - Cardio-respiratory arrest [Fatal]
  - Renal failure [Fatal]
  - Diabetes mellitus [Fatal]
